FAERS Safety Report 7417741-4 (Version None)
Quarter: 2011Q2

REPORT INFORMATION
  Report Type: 
  Country: None (occurrence: None)
  Receive Date: 20110415
  Receipt Date: 20110414
  Transmission Date: 20111010
  Serious: Yes (Hospitalization)
  Sender: FDA-Public Use
  Company Number: PHHO2004DK08743

PATIENT
  Sex: Female
  Weight: 64.8 kg

DRUGS (1)
  1. FTY 720 [Suspect]
     Indication: MULTIPLE SCLEROSIS
     Dosage: BLINDED DOSE
     Route: 048
     Dates: start: 20040621, end: 20040621

REACTIONS (4)
  - PALPITATIONS [None]
  - HEART RATE ABNORMAL [None]
  - BRADYCARDIA [None]
  - HEART RATE DECREASED [None]
